FAERS Safety Report 9777624 (Version 2)
Quarter: 2014Q2

REPORT INFORMATION
  Report Type: Spontaneous
  Country: JP (occurrence: JP)
  Receive Date: 20131222
  Receipt Date: 20140502
  Transmission Date: 20141212
  Serious: Yes (Other)
  Sender: FDA-Public Use
  Company Number: JP-ROCHE-1320633

PATIENT
  Age: 8 Decade
  Sex: Female

DRUGS (4)
  1. XELODA [Suspect]
     Indication: COLON CANCER RECURRENT
     Route: 048
     Dates: start: 20131008, end: 20131021
  2. XELODA [Suspect]
     Route: 048
     Dates: start: 20131029, end: 20131111
  3. WARFARIN POTASSIUM [Concomitant]
     Dosage: DOSAGE UNCERTAIN
     Route: 048
  4. HEPARIN SODIUM [Concomitant]

REACTIONS (3)
  - Metastases to liver [Unknown]
  - International normalised ratio increased [Recovering/Resolving]
  - International normalised ratio increased [Recovering/Resolving]
